FAERS Safety Report 11392980 (Version 1)
Quarter: 2015Q3

REPORT INFORMATION
  Report Type: Spontaneous
  Country: US (occurrence: US)
  Receive Date: 20150818
  Receipt Date: 20150818
  Transmission Date: 20151125
  Serious: No
  Sender: FDA-Public Use
  Company Number: US-ENDO PHARMACEUTICALS INC.-2015-000168

PATIENT
  Sex: Female

DRUGS (2)
  1. VENLAFAXINE HYDROCHLORIDE TABLETS 75MG [Suspect]
     Active Substance: VENLAFAXINE HYDROCHLORIDE
     Dosage: 1 AND 1/2 TABLETS IN THE MORNING AND AT NOON AND 1 TABLET IN THE EVENING
     Route: 048
     Dates: start: 2009, end: 2010
  2. VENLAFAXINE HYDROCHLORIDE TABLETS 75MG [Suspect]
     Active Substance: VENLAFAXINE HYDROCHLORIDE
     Indication: DEPRESSION
     Route: 048
     Dates: start: 2009, end: 2009

REACTIONS (6)
  - Vision blurred [Recovered/Resolved]
  - Tremor [Recovered/Resolved]
  - Visual acuity reduced [Recovered/Resolved]
  - Tinnitus [Recovered/Resolved]
  - Dyskinesia [Recovered/Resolved]
  - Drug effect decreased [Recovered/Resolved]

NARRATIVE: CASE EVENT DATE: 2009
